FAERS Safety Report 5643216-9 (Version None)
Quarter: 2008Q1

REPORT INFORMATION
  Report Type: 
  Country: None (occurrence: None)
  Receive Date: 20080228
  Receipt Date: 20080225
  Transmission Date: 20080703
  Serious: Yes (Other)
  Sender: FDA-Public Use
  Company Number: FR-ASTRAZENECA-2008CG00309

PATIENT
  Age: 25019 Day
  Sex: Female

DRUGS (14)
  1. TENORMIN [Suspect]
     Route: 048
     Dates: start: 20060705
  2. AVASTIN [Suspect]
     Indication: COLON CANCER
     Route: 042
     Dates: start: 20060705, end: 20061201
  3. AVASTIN [Suspect]
     Route: 042
     Dates: start: 20061201, end: 20070301
  4. AVASTIN [Suspect]
     Route: 042
     Dates: start: 20070703, end: 20070822
  5. AVASTIN [Suspect]
     Route: 042
     Dates: start: 20070905
  6. CAMPTO [Suspect]
     Indication: COLON CANCER
     Route: 042
     Dates: start: 20060701, end: 20061201
  7. CAMPTO [Suspect]
     Route: 042
     Dates: start: 20070703, end: 20070822
  8. FLUOROURACIL [Suspect]
     Indication: COLON CANCER
     Route: 042
     Dates: start: 20060701, end: 20061201
  9. FLUOROURACIL [Suspect]
     Route: 042
     Dates: start: 20070703, end: 20070822
  10. FLUOROURACIL [Suspect]
     Route: 042
     Dates: start: 20070905
  11. VALSARTAN AND HYDROCHLOROTHIAZIDE [Suspect]
     Route: 048
     Dates: start: 20060705
  12. EFFEXOR [Suspect]
     Route: 048
     Dates: start: 20060705
  13. LEXOMIL [Concomitant]
     Dates: start: 20060705
  14. DIFFU K [Concomitant]
     Dates: start: 20060705

REACTIONS (1)
  - INTERSTITIAL LUNG DISEASE [None]
